FAERS Safety Report 4878772-1 (Version None)
Quarter: 2005Q4

REPORT INFORMATION
  Report Type: 
  Country: None (occurrence: None)
  Receive Date: 20051209
  Receipt Date: 20050407
  Transmission Date: 20060501
  Serious: Yes (Other)
  Sender: FDA-Public Use
  Company Number: USA-2003-0009613

PATIENT
  Age: 48 Year
  Sex: Male
  Weight: 80.7 kg

DRUGS (7)
  1. OXYCONTIN [Suspect]
     Indication: PAIN
     Dosage: TID
  2. NEURONTIN [Concomitant]
  3. CELEXA [Concomitant]
  4. PROVERA [Concomitant]
  5. CLONAZEPAM [Concomitant]
  6. DURAGESIC-100 [Concomitant]
  7. LORAZEPAM [Concomitant]

REACTIONS (40)
  - ABDOMINAL PAIN [None]
  - ANGER [None]
  - ANXIETY [None]
  - ARTHRALGIA [None]
  - BONE PAIN [None]
  - CONSTIPATION [None]
  - DEPRESSION [None]
  - DISTURBANCE IN ATTENTION [None]
  - DIZZINESS [None]
  - DRUG DEPENDENCE [None]
  - DRUG WITHDRAWAL SYNDROME [None]
  - DYSKINESIA [None]
  - DYSPEPSIA [None]
  - DYSPHAGIA [None]
  - DYSPNOEA [None]
  - FATIGUE [None]
  - FEELING ABNORMAL [None]
  - FORMICATION [None]
  - HYPERHIDROSIS [None]
  - HYPOTONIA [None]
  - INCREASED APPETITE [None]
  - IRRITABILITY [None]
  - LACRIMATION INCREASED [None]
  - MEMORY IMPAIRMENT [None]
  - MUSCULOSKELETAL STIFFNESS [None]
  - MYALGIA [None]
  - NAUSEA [None]
  - NECK PAIN [None]
  - NERVOUSNESS [None]
  - NIGHTMARE [None]
  - PAIN [None]
  - PAIN IN EXTREMITY [None]
  - RHINORRHOEA [None]
  - SEXUAL DYSFUNCTION [None]
  - SLEEP APNOEA SYNDROME [None]
  - SLEEP PARALYSIS [None]
  - SNORING [None]
  - SOMNOLENCE [None]
  - VOMITING [None]
  - WEIGHT INCREASED [None]
